FAERS Safety Report 8288044-3 (Version None)
Quarter: 2012Q2

REPORT INFORMATION
  Report Type: 
  Country: None (occurrence: None)
  Receive Date: 20120416
  Receipt Date: 20120319
  Transmission Date: 20120825
  Serious: Yes (Hospitalization)
  Sender: FDA-Public Use
  Company Number: DE-GLAXOSMITHKLINE-D0074989A

PATIENT
  Sex: Male
  Weight: 92 kg

DRUGS (15)
  1. ARIXTRA [Suspect]
     Indication: THROMBOSIS PROPHYLAXIS
     Dosage: 2.5MG PER DAY
     Route: 058
     Dates: start: 20120309, end: 20120314
  2. SAB SIMPLEX [Concomitant]
     Route: 048
     Dates: start: 20120307
  3. DIPYRONE TAB [Concomitant]
     Route: 065
     Dates: start: 20120307
  4. METOCLOPRAMIDE [Concomitant]
     Route: 065
     Dates: start: 20120307
  5. TILIDIN [Concomitant]
     Dosage: 50MG AS REQUIRED
     Route: 048
     Dates: start: 20120307
  6. METOPROLOL TARTRATE AND HYDROCHLOROTHIAZIDE [Concomitant]
     Indication: HYPERTENSION
     Route: 048
  7. DICLOFENAC [Concomitant]
     Dosage: 50MG THREE TIMES PER DAY
     Route: 048
     Dates: start: 20120307
  8. RANITIDINE HCL [Concomitant]
     Dosage: 150MG TWICE PER DAY
     Route: 048
  9. TAMSULOSIN HCL [Concomitant]
     Dosage: .4MG PER DAY
     Route: 048
  10. MUSARIL [Concomitant]
     Dosage: 50MG TWICE PER DAY
     Route: 048
     Dates: start: 20120313
  11. DELIX [Concomitant]
     Indication: HYPERTENSION
     Dosage: 5MG PER DAY
     Route: 048
  12. SIMVASTATIN [Concomitant]
     Dosage: 40MG PER DAY
     Route: 048
  13. TRAMADOL HYDROCHLORIDE [Concomitant]
     Route: 065
     Dates: start: 20120307
  14. ZOPICLON [Concomitant]
     Dosage: 7.5MG AS REQUIRED
     Route: 048
     Dates: start: 20120307
  15. DELIX PLUS [Concomitant]
     Indication: HYPERTENSION
     Dosage: 30MG PER DAY
     Route: 048

REACTIONS (1)
  - POST PROCEDURAL PULMONARY EMBOLISM [None]
